FAERS Safety Report 17106840 (Version 1)
Quarter: 2019Q4

REPORT INFORMATION
  Report Type: Spontaneous
  Country: FR (occurrence: FR)
  Receive Date: 20191203
  Receipt Date: 20191203
  Transmission Date: 20200122
  Serious: Yes (Other)
  Sender: FDA-Public Use
  Company Number: FR-MYLANLABS-2019M1116452

PATIENT
  Age: 62 Year
  Sex: Male
  Weight: 96 kg

DRUGS (3)
  1. LYSANXIA [Suspect]
     Active Substance: PRAZEPAM
     Indication: ANXIETY
     Dosage: 10 MILLIGRAM, QD
     Route: 048
     Dates: start: 20190605, end: 20190606
  2. ZAMUDOL LP 150 MG, G?LULE ? LIB?RATION PROLONG?E [Suspect]
     Active Substance: TRAMADOL HYDROCHLORIDE
     Indication: PAIN
     Dosage: 2 DOSAGE FORM, QD
     Route: 048
     Dates: start: 20190605, end: 20190607
  3. ZOPICLONE [Suspect]
     Active Substance: ZOPICLONE
     Indication: INSOMNIA
     Dosage: 15 MILLIGRAM, QD
     Route: 048
     Dates: start: 20190605, end: 20190606

REACTIONS (5)
  - Miosis [Recovered/Resolved]
  - Hyporesponsive to stimuli [Recovered/Resolved]
  - Hypersomnia [Recovered/Resolved]
  - Respiratory rate decreased [Recovered/Resolved]
  - Quadriparesis [Recovered/Resolved]

NARRATIVE: CASE EVENT DATE: 20190606
